FAERS Safety Report 13190391 (Version 3)
Quarter: 2018Q4

REPORT INFORMATION
  Report Type: Spontaneous
  Country: JP (occurrence: JP)
  Receive Date: 20170206
  Receipt Date: 20181102
  Transmission Date: 20190204
  Serious: Yes (Other)
  Sender: FDA-Public Use
  Company Number: JP-BAUSCH-BL-2017-002744

PATIENT
  Age: 58 Year
  Sex: Female

DRUGS (6)
  1. EYLEA [Suspect]
     Active Substance: AFLIBERCEPT
     Dosage: ADMINISTRATION INTERVAL OF EYLEA WAS PROLONGED
     Route: 065
  2. VISUDYNE [Suspect]
     Active Substance: VERTEPORFIN
     Indication: AGE-RELATED MACULAR DEGENERATION
     Route: 042
  3. EYLEA [Suspect]
     Active Substance: AFLIBERCEPT
     Indication: AGE-RELATED MACULAR DEGENERATION
     Route: 065
  4. EYLEA [Suspect]
     Active Substance: AFLIBERCEPT
     Route: 065
  5. LUCENTIS [Suspect]
     Active Substance: RANIBIZUMAB
     Indication: AGE-RELATED MACULAR DEGENERATION
     Dosage: RECEIVED LUCENTIS FOR 7 TIMES IN TOTAL, INTRAVITREAL IN
     Route: 046
  6. EYLEA [Suspect]
     Active Substance: AFLIBERCEPT
     Route: 065

REACTIONS (3)
  - Visual acuity reduced [Unknown]
  - Drug effect incomplete [Unknown]
  - Subretinal fluid [Recovering/Resolving]
